FAERS Safety Report 25841157 (Version 2)
Quarter: 2025Q4

REPORT INFORMATION
  Report Type: Spontaneous
  Country: US (occurrence: US)
  Receive Date: 20250924
  Receipt Date: 20251016
  Transmission Date: 20260117
  Serious: No
  Sender: MERZ
  Company Number: US-Merz Pharmaceuticals GmbH-2025090000130

PATIENT

DRUGS (1)
  1. XEOMIN [Suspect]
     Active Substance: INCOBOTULINUMTOXINA
     Indication: Product used for unknown indication

REACTIONS (2)
  - Injection site pustule [Unknown]
  - Injection site discolouration [Unknown]
